FAERS Safety Report 24963317 (Version 2)
Quarter: 2025Q1

REPORT INFORMATION
  Report Type: Spontaneous
  Country: US (occurrence: US)
  Receive Date: 20250213
  Receipt Date: 20250313
  Transmission Date: 20250409
  Serious: Yes (Life-Threatening, Hospitalization, Other)
  Sender: GLAXOSMITHKLINE
  Company Number: US-GSK-US2025GSK016694

PATIENT

DRUGS (1)
  1. BUPROPION HYDROCHLORIDE XL [Suspect]
     Active Substance: BUPROPION HYDROCHLORIDE
     Indication: Product used for unknown indication
     Route: 048

REACTIONS (7)
  - Overdose [Unknown]
  - Shock [Recovering/Resolving]
  - Circulatory collapse [Recovering/Resolving]
  - Encephalopathy [Recovering/Resolving]
  - Seizure [Recovering/Resolving]
  - Cardiac arrest [Recovering/Resolving]
  - Nervous system disorder [Recovering/Resolving]
